FAERS Safety Report 8778420 (Version 3)
Quarter: 2013Q2

REPORT INFORMATION
  Report Type: Spontaneous
  Country: US (occurrence: US)
  Receive Date: 20120912
  Receipt Date: 20130621
  Transmission Date: 20140414
  Serious: Yes (Life-Threatening, Hospitalization, Other)
  Sender: FDA-Public Use
  Company Number: US-GLAXOSMITHKLINE-A0992935A

PATIENT
  Age: 33 Year
  Sex: Female
  Weight: 56 kg

DRUGS (14)
  1. FLOLAN [Suspect]
     Indication: COR PULMONALE CHRONIC
     Dosage: 43NGKM CONTINUOUS
     Route: 065
     Dates: start: 20091221
  2. CYTOXAN [Concomitant]
  3. DEXAMETHASONE [Concomitant]
  4. HYDROXYCHLOROQUINE SULFATE [Concomitant]
  5. LASIX [Concomitant]
  6. LISINOPRIL [Concomitant]
  7. OMEPRAZOLE [Concomitant]
  8. OYSTER SHELL CALCIUM + VITAMIN D [Concomitant]
  9. POTASSIUM CHLORIDE [Concomitant]
  10. PROCHLORPERAZINE MALEATE [Concomitant]
  11. REVATIO [Concomitant]
  12. SPIRONOLACTONE [Concomitant]
  13. TRACLEER [Concomitant]
  14. VALACYCLOVIR [Concomitant]

REACTIONS (14)
  - Pulmonary hypertension [Recovering/Resolving]
  - Hospitalisation [Recovering/Resolving]
  - Pulmonary hypertensive crisis [Recovering/Resolving]
  - Right ventricular failure [Recovering/Resolving]
  - Shock [Recovering/Resolving]
  - Pulmonary congestion [Unknown]
  - Central venous catheterisation [Unknown]
  - Ascites [Unknown]
  - Condition aggravated [Unknown]
  - Dyspnoea [Unknown]
  - Waist circumference increased [Unknown]
  - Dyspnoea exertional [Unknown]
  - Cardiac murmur [Unknown]
  - Heart sounds abnormal [Unknown]
